FAERS Safety Report 6569929-2 (Version None)
Quarter: 2010Q1

REPORT INFORMATION
  Report Type: 
  Country: None (occurrence: None)
  Receive Date: 20100204
  Receipt Date: 20100122
  Transmission Date: 20100710
  Serious: Yes (Other)
  Sender: FDA-Public Use
  Company Number: PHEH2010US01269

PATIENT
  Sex: Female

DRUGS (13)
  1. RECLAST [Suspect]
     Dosage: UNK
     Dates: start: 20090206
  2. LORAZEPAM [Concomitant]
     Dosage: 0.5 MG, UNK
  3. CENTRUM SILVER [Concomitant]
     Dosage: UNK
  4. ASMANEX TWISTHALER [Concomitant]
     Dosage: 220 MCG
  5. FLUTICASONE PROPIONATE [Concomitant]
     Dosage: 50 MCG
  6. SYNTHROID [Concomitant]
     Dosage: 0.05 MG, UNK
  7. FLUOXETINE [Concomitant]
     Dosage: 40 MG, UNK
  8. BUPROPION [Concomitant]
     Dosage: 200 MG, UNK
  9. OMEPRAZOLE [Concomitant]
     Dosage: 20 MG, UNK
  10. LISINOPRIL [Concomitant]
     Dosage: 20 MG, UNK
  11. SIMVASTATIN [Concomitant]
     Dosage: 10 MG, UNK
  12. VITAMIN D [Concomitant]
     Dosage: UNK
  13. CITRACAL [Concomitant]
     Dosage: UNK

REACTIONS (2)
  - ASTHMA [None]
  - EXOSTOSIS [None]
